FAERS Safety Report 4279225-4 (Version None)
Quarter: 2004Q1

REPORT INFORMATION
  Report Type: 
  Country: None (occurrence: None)
  Receive Date: 20040123
  Receipt Date: 20040110
  Transmission Date: 20041129
  Serious: Yes (Hospitalization, Other)
  Sender: FDA-Public Use
  Company Number: 2003119089

PATIENT
  Sex: Male

DRUGS (6)
  1. DILANTIN [Suspect]
     Indication: CONVULSION
     Dosage: 400 MG (DAILY), ORAL
     Route: 048
     Dates: start: 19950101
  2. DILANTIN [Suspect]
     Indication: EPILEPSY
     Dosage: 400 MG (DAILY), ORAL
     Route: 048
     Dates: start: 19950101
  3. FLUOXETINE HCL [Suspect]
     Indication: ILL-DEFINED DISORDER
  4. PAROXETINE HCL [Suspect]
     Indication: ANXIETY
  5. PAROXETINE HCL [Suspect]
     Indication: DEPRESSION
  6. PAROXETINE HCL [Suspect]
     Indication: INSOMNIA

REACTIONS (16)
  - ANXIETY [None]
  - BACK PAIN [None]
  - CONVULSION [None]
  - DEPRESSION [None]
  - DISEASE RECURRENCE [None]
  - DRUG INEFFECTIVE [None]
  - DRUG INTERACTION [None]
  - ECONOMIC PROBLEM [None]
  - GRAND MAL CONVULSION [None]
  - INSOMNIA [None]
  - LIVER DISORDER [None]
  - PAIN [None]
  - RASH [None]
  - RESTLESSNESS [None]
  - TREATMENT NONCOMPLIANCE [None]
  - WEIGHT INCREASED [None]
